FAERS Safety Report 10488204 (Version 1)
Quarter: 2014Q4

REPORT INFORMATION
  Report Type: Spontaneous
  Country: DE (occurrence: DE)
  Receive Date: 20141002
  Receipt Date: 20141002
  Transmission Date: 20150528
  Serious: Yes (Hospitalization)
  Sender: FDA-Public Use
  Company Number: DE-009507513-1409DEU013909

PATIENT
  Age: 66 Year
  Sex: Male

DRUGS (2)
  1. EZETROL 10 MG TABLETTEN [Suspect]
     Active Substance: EZETIMIBE
     Indication: CORONARY ARTERY DISEASE
  2. EZETROL 10 MG TABLETTEN [Suspect]
     Active Substance: EZETIMIBE
     Indication: HYPERLIPIDAEMIA
     Dosage: UNK
     Route: 048
     Dates: start: 2011

REACTIONS (4)
  - Vomiting [Recovered/Resolved]
  - Myalgia [Recovered/Resolved]
  - Blood creatine phosphokinase increased [Not Recovered/Not Resolved]
  - Nausea [Recovered/Resolved]
